FAERS Safety Report 8790078 (Version 2)
Quarter: 2012Q4

REPORT INFORMATION
  Report Type: 
  Country: PE (occurrence: PE)
  Receive Date: 20120917
  Receipt Date: 20121012
  Transmission Date: 20130627
  Serious: Yes (Death)
  Sender: FDA-Public Use
  Company Number: PE-PFIZER INC-2012228361

PATIENT
  Age: 97 Year
  Sex: Female

DRUGS (2)
  1. ZOLOFT [Suspect]
     Dosage: UNK
     Route: 048
  2. NORVASC [Suspect]
     Dosage: UNK
     Route: 048

REACTIONS (1)
  - Pneumonia [Fatal]
